FAERS Safety Report 24962761 (Version 2)
Quarter: 2025Q1

REPORT INFORMATION
  Report Type: Spontaneous
  Country: JP (occurrence: JP)
  Receive Date: 20250213
  Receipt Date: 20250219
  Transmission Date: 20250409
  Serious: Yes (Death, Hospitalization, Other)
  Sender: SANOFI AVENTIS
  Company Number: JP-SA-2025SA017467

PATIENT
  Age: 80 Year
  Sex: Female

DRUGS (2)
  1. KEVZARA [Suspect]
     Active Substance: SARILUMAB
     Indication: Rheumatoid arthritis
     Dosage: 200 MG, QOW
     Route: 058
     Dates: end: 202412
  2. ADALIMUMAB [Suspect]
     Active Substance: ADALIMUMAB
     Indication: Rheumatoid arthritis
     Route: 065

REACTIONS (4)
  - Renal impairment [Fatal]
  - Multiple organ dysfunction syndrome [Fatal]
  - Staphylococcal sepsis [Fatal]
  - Rheumatoid arthritis [Unknown]

NARRATIVE: CASE EVENT DATE: 20250110
